FAERS Safety Report 24548568 (Version 1)
Quarter: 2024Q4

REPORT INFORMATION
  Report Type: Spontaneous
  Country: ZA (occurrence: ZA)
  Receive Date: 20241025
  Receipt Date: 20241025
  Transmission Date: 20250115
  Serious: Yes (Hospitalization)
  Sender: MACLEODS
  Company Number: ZA-MACLEODS PHARMA-MAC2024049944

PATIENT

DRUGS (22)
  1. HYDROCHLOROTHIAZIDE\VALSARTAN [Suspect]
     Active Substance: HYDROCHLOROTHIAZIDE\VALSARTAN
     Indication: Hypertension
     Dosage: IN THE MORNING
     Route: 048
  2. AMITRIPTYLINE [Suspect]
     Active Substance: AMITRIPTYLINE
     Indication: Depression
     Dosage: AT NIGHT
     Route: 048
  3. VAGIFEM [Suspect]
     Active Substance: ESTRADIOL
     Indication: Menopause
     Route: 067
  4. CHOLESTYRAMINE [Suspect]
     Active Substance: CHOLESTYRAMINE
     Indication: Blood cholesterol
     Dosage: AS DIRECTED
     Route: 048
  5. CHLOROFORM\KAOLIN\OPIUM\PECTIN\POTASSIUM CHLORIDE\SODIUM CHLORIDE\SODI [Suspect]
     Active Substance: CHLOROFORM\KAOLIN\OPIUM\PECTIN\POTASSIUM CHLORIDE\SODIUM CHLORIDE\SODIUM LACTATE
     Indication: Product used for unknown indication
     Dosage: AS DIRECTED
     Route: 048
  6. ACETAMINOPHEN\CHLORPHENIRAMINE\CODEINE\PSEUDOEPHEDRINE [Suspect]
     Active Substance: ACETAMINOPHEN\CHLORPHENIRAMINE\CODEINE\PSEUDOEPHEDRINE
     Indication: Product used for unknown indication
     Dosage: ONE
     Route: 048
  7. FLUTICASONE PROPIONATE [Suspect]
     Active Substance: FLUTICASONE PROPIONATE
     Indication: Hypersensitivity
     Dosage: ONE
     Route: 045
  8. VERMOX [Suspect]
     Active Substance: MEBENDAZOLE
     Indication: Product used for unknown indication
     Dosage: AS PER PACKAGE INSERT
     Route: 048
  9. HYDROCHLOROTHIAZIDE\VALSARTAN [Suspect]
     Active Substance: HYDROCHLOROTHIAZIDE\VALSARTAN
     Indication: Hypertension
     Dosage: IN THE MORNING
     Route: 048
  10. OMEPRAZOLE [Suspect]
     Active Substance: OMEPRAZOLE
     Indication: Gastrooesophageal reflux disease
     Route: 048
  11. LEVOFLOXACIN [Suspect]
     Active Substance: LEVOFLOXACIN
     Indication: Product used for unknown indication
     Route: 048
  12. AMOXICILLIN [Suspect]
     Active Substance: AMOXICILLIN
     Indication: Product used for unknown indication
     Route: 048
  13. LACTOBACILLUS REUTERI [Suspect]
     Active Substance: LACTOBACILLUS REUTERI
     Indication: Product used for unknown indication
     Dosage: CHEW
     Route: 048
  14. PICOPREP [Suspect]
     Active Substance: ANHYDROUS CITRIC ACID\MAGNESIUM OXIDE\SODIUM PICOSULFATE
     Indication: Product used for unknown indication
     Dosage: DISSOLVE EACH SACHET IN 250ML HOT WATER
     Route: 048
  15. PANTOPRAZOLE [Suspect]
     Active Substance: PANTOPRAZOLE
     Indication: Ulcer
     Dosage: IN THE MORNING
     Route: 048
  16. PANTOPRAZOLE [Suspect]
     Active Substance: PANTOPRAZOLE
     Dosage: IN THE MORNING
     Route: 048
  17. INFLUVAC [Suspect]
     Active Substance: INFLUENZA VIRUS VACCINE TRIVALENT TYPE A+B
     Indication: Product used for unknown indication
     Route: 058
  18. ACETAMINOPHEN\CODEINE\IBUPROFEN [Suspect]
     Active Substance: ACETAMINOPHEN\CODEINE\IBUPROFEN
     Indication: Product used for unknown indication
     Route: 048
  19. PROCYCLIDINE [Suspect]
     Active Substance: PROCYCLIDINE
     Indication: Product used for unknown indication
     Route: 048
  20. CHLORPHENIRAMINE\PHENYLEPHRINE\PHENYLPROPANOLAMINE\PHENYLTOLOXAMINE [Suspect]
     Active Substance: CHLORPHENIRAMINE\PHENYLEPHRINE\PHENYLPROPANOLAMINE\PHENYLTOLOXAMINE
     Indication: Product used for unknown indication
     Dosage: AS PRESCRIBED
     Route: 048
  21. BROMHEXINE\METAPROTERENOL [Suspect]
     Active Substance: BROMHEXINE\METAPROTERENOL
     Indication: Product used for unknown indication
     Dosage: AS DIRECTED
     Route: 048
  22. CLARITHROMYCIN [Suspect]
     Active Substance: CLARITHROMYCIN
     Indication: Product used for unknown indication
     Route: 048

REACTIONS (3)
  - Limb injury [Unknown]
  - Scapula fracture [Unknown]
  - Road traffic accident [Unknown]

NARRATIVE: CASE EVENT DATE: 20241010
